FAERS Safety Report 21218479 (Version 2)
Quarter: 2022Q3

REPORT INFORMATION
  Report Type: Spontaneous
  Country: JP (occurrence: JP)
  Receive Date: 20220816
  Receipt Date: 20220822
  Transmission Date: 20221027
  Serious: Yes (Other)
  Sender: FDA-Public Use
  Company Number: JP-CHUGAI-2022030918

PATIENT
  Age: 69 Year
  Sex: Female

DRUGS (1)
  1. VABYSMO [Suspect]
     Active Substance: FARICIMAB-SVOA
     Indication: Diabetic retinal oedema
     Dosage: 0.05 MILLILITER, ONCE/MONTH
     Route: 047
     Dates: start: 20220720

REACTIONS (1)
  - Eye inflammation [Recovering/Resolving]

NARRATIVE: CASE EVENT DATE: 20220805
